FAERS Safety Report 7671503-1 (Version None)
Quarter: 2011Q3

REPORT INFORMATION
  Report Type: 
  Country: None (occurrence: None)
  Receive Date: 20110809
  Receipt Date: 20110722
  Transmission Date: 20111222
  Serious: No
  Sender: FDA-Public Use
  Company Number: US-BAYER-2011-066049

PATIENT
  Age: 44 Year
  Sex: Female
  Weight: 65.76 kg

DRUGS (1)
  1. ALEVE (CAPLET) [Suspect]
     Indication: HEADACHE
     Dosage: 2 DF, ONCE, BOTTLE COUNT 24S
     Route: 048
     Dates: start: 20110721, end: 20110722

REACTIONS (1)
  - DIZZINESS [None]
